FAERS Safety Report 7022202-0 (Version None)
Quarter: 2010Q3

REPORT INFORMATION
  Report Type: 
  Country: None (occurrence: None)
  Receive Date: 20100930
  Receipt Date: 20100921
  Transmission Date: 20110219
  Serious: Yes (Congenital Anomaly)
  Sender: FDA-Public Use
  Company Number: US-ASTRAZENECA-2010SE44479

PATIENT
  Age: 28 Month
  Sex: Male

DRUGS (3)
  1. SEROQUEL XR [Suspect]
     Route: 064
  2. CYMBALTA [Concomitant]
     Route: 064
  3. ADDERALL 10 [Concomitant]
     Route: 064

REACTIONS (1)
  - STRABISMUS [None]
